FAERS Safety Report 8515310-6 (Version None)
Quarter: 2012Q3

REPORT INFORMATION
  Report Type: 
  Country: None (occurrence: None)
  Receive Date: 20120717
  Receipt Date: 20091214
  Transmission Date: 20120928
  Serious: Yes (Other)
  Sender: FDA-Public Use
  Company Number: AU-ROCHE-1088246

PATIENT
  Sex: Female

DRUGS (5)
  1. AVASTIN [Suspect]
     Dosage: 5 MG/KG
  2. AVASTIN [Suspect]
     Indication: COLORECTAL CANCER METASTATIC
     Dosage: 5 MG/KG
     Dates: start: 20090216
  3. IRINOTECAN HCL [Concomitant]
     Indication: COLORECTAL CANCER METASTATIC
  4. AVASTIN [Suspect]
     Dosage: 5 MG/KG
  5. FLUOROURACIL [Concomitant]
     Indication: COLORECTAL CANCER METASTATIC

REACTIONS (1)
  - POST PROCEDURAL COMPLICATION [None]
